FAERS Safety Report 12917320 (Version 1)
Quarter: 2016Q4

REPORT INFORMATION
  Report Type: Report from Study
  Country: CN (occurrence: CN)
  Receive Date: 20161107
  Receipt Date: 20161107
  Transmission Date: 20170207
  Serious: Yes (Other)
  Sender: FDA-Public Use
  Company Number: CN-ROCHE-1850020

PATIENT

DRUGS (3)
  1. ALTEPLASE [Suspect]
     Active Substance: ALTEPLASE
     Indication: ISCHAEMIC STROKE
     Route: 042
  2. TIROFIBAN [Concomitant]
     Active Substance: TIROFIBAN
     Indication: ISCHAEMIC STROKE
     Dosage: BODY-WEIGHT-ADJUSTED DOSAGE WITH A BOLUS OF 0.4 MCG/KG BODY WEIGHT PER MINUTE FOR 30 MINUTES
     Route: 040
  3. TIROFIBAN [Concomitant]
     Active Substance: TIROFIBAN
     Dosage: CONTINUOUS INFUSION OF 0.1 MCG/KG BODY WEIGHT PER MINUTE FOR AT LEAST 24 HOURS
     Route: 042

REACTIONS (1)
  - General physical health deterioration [Unknown]
